FAERS Safety Report 9064659 (Version 6)
Quarter: 2013Q3

REPORT INFORMATION
  Report Type: Report from Study
  Country: CA (occurrence: CA)
  Receive Date: 20130128
  Receipt Date: 20130802
  Transmission Date: 20140515
  Serious: Yes (Life-Threatening, Hospitalization, Other)
  Sender: FDA-Public Use
  Company Number: PHHY2013CA007469

PATIENT
  Age: 65 Year
  Sex: Male

DRUGS (6)
  1. TASIGNA [Suspect]
     Indication: CHRONIC MYELOID LEUKAEMIA
     Dosage: 300-400MG/BID
     Dates: start: 20100515, end: 20130215
  2. BABY ASPIRIN [Concomitant]
     Indication: CARDIAC DISORDER
     Dosage: UNK
     Dates: start: 201209
  3. PANTOPRAZOLE [Concomitant]
     Dates: start: 201007
  4. ASAPHEN [Concomitant]
     Dosage: 80 MG, DIE
  5. LISINOPRIL [Concomitant]
     Dosage: 10 MG, DIE
  6. METOPROLOL [Concomitant]
     Dosage: 25 MG, BID

REACTIONS (16)
  - Acute coronary syndrome [Recovered/Resolved with Sequelae]
  - Coronary artery disease [Recovered/Resolved with Sequelae]
  - Acute myocardial infarction [Recovering/Resolving]
  - Angina pectoris [Recovering/Resolving]
  - Chest pain [Unknown]
  - Dyspnoea [Recovering/Resolving]
  - Hypoaesthesia [Unknown]
  - Chest discomfort [Recovering/Resolving]
  - Pain in extremity [Unknown]
  - Cerebrovascular accident [Unknown]
  - Memory impairment [Unknown]
  - Reading disorder [Unknown]
  - Infarction [Not Recovered/Not Resolved]
  - Intermittent claudication [Not Recovered/Not Resolved]
  - Poor peripheral circulation [Unknown]
  - Speech disorder [Unknown]
